FAERS Safety Report 9300692 (Version 2)
Quarter: 2013Q3

REPORT INFORMATION
  Report Type: Spontaneous
  Country: US (occurrence: US)
  Receive Date: 20130521
  Receipt Date: 20130709
  Transmission Date: 20140515
  Serious: Yes (Other)
  Sender: FDA-Public Use
  Company Number: US-JNJFOC-20130508430

PATIENT
  Age: 65 Year
  Sex: Female
  Weight: 79.38 kg

DRUGS (14)
  1. REMICADE [Suspect]
     Indication: UVEITIS
     Route: 042
     Dates: start: 201303
  2. REMICADE [Suspect]
     Indication: UVEITIS
     Dosage: 8 VIALS
     Route: 042
     Dates: start: 2008, end: 201212
  3. REMICADE [Suspect]
     Indication: ANKYLOSING SPONDYLITIS
     Dosage: 8 VIALS
     Route: 042
     Dates: start: 2008, end: 201212
  4. REMICADE [Suspect]
     Indication: ANKYLOSING SPONDYLITIS
     Route: 042
     Dates: start: 201303
  5. REMICADE [Suspect]
     Indication: PSORIATIC ARTHROPATHY
     Route: 042
     Dates: start: 201303
  6. REMICADE [Suspect]
     Indication: PSORIATIC ARTHROPATHY
     Dosage: 8 VIALS
     Route: 042
     Dates: start: 2008, end: 201212
  7. MONTELUKAST SODIUM [Concomitant]
     Indication: ASTHMA
     Route: 048
  8. ALLEGRA-D [Concomitant]
     Indication: ASTHMA
     Dosage: DOSE: 1 (UNITS UNSPECIFIED)
     Route: 048
  9. FLOVENT INHALER [Concomitant]
     Indication: ASTHMA
     Dosage: 4 PUFFS
     Route: 055
  10. NASONEX [Concomitant]
     Indication: ASTHMA
     Dosage: 2 SPRAYS
     Route: 045
  11. AZELASTINE [Concomitant]
     Indication: ASTHMA
     Dosage: 2 SPRAYS
     Route: 045
  12. XOPENEX [Concomitant]
     Indication: ASTHMA
     Dosage: AS NEEDED
     Route: 065
  13. NEXIUM [Concomitant]
     Indication: GASTROOESOPHAGEAL REFLUX DISEASE
     Route: 048
  14. HYDROCHLOROTHIAZIDE [Concomitant]
     Indication: BLOOD PRESSURE
     Route: 048

REACTIONS (3)
  - Central nervous system lesion [Not Recovered/Not Resolved]
  - Viral infection [Not Recovered/Not Resolved]
  - Joint swelling [Not Recovered/Not Resolved]
